FAERS Safety Report 20701532 (Version 1)
Quarter: 2022Q2

REPORT INFORMATION
  Report Type: Spontaneous
  Country: US (occurrence: US)
  Receive Date: 20220412
  Receipt Date: 20220412
  Transmission Date: 20220721
  Serious: No
  Sender: FDA-Public Use
  Company Number: US-MYLANLABS-2022M1025431

PATIENT
  Sex: Female
  Weight: 77.11 kg

DRUGS (1)
  1. WIXELA INHUB [Suspect]
     Active Substance: FLUTICASONE PROPIONATE\SALMETEROL XINAFOATE
     Indication: Chronic obstructive pulmonary disease
     Dosage: 250/50 MICROGRAM, ONCE OR TWICE A DAY
     Route: 055
     Dates: end: 20220328

REACTIONS (2)
  - Sneezing [Unknown]
  - Cough [Unknown]
